FAERS Safety Report 15469527 (Version 1)
Quarter: 2018Q4

REPORT INFORMATION
  Report Type: Spontaneous
  Country: GB (occurrence: GB)
  Receive Date: 20181005
  Receipt Date: 20181005
  Transmission Date: 20190205
  Serious: Yes (Other)
  Sender: FDA-Public Use
  Company Number: GB-SAKK-2018SA271353AA

PATIENT
  Age: 42 Year
  Sex: Female

DRUGS (1)
  1. FABRAZYME [Suspect]
     Active Substance: AGALSIDASE BETA
     Dosage: 70
     Route: 042

REACTIONS (2)
  - Muscle spasms [Recovering/Resolving]
  - Seizure [Unknown]
